FAERS Safety Report 21781695 (Version 1)
Quarter: 2022Q4

REPORT INFORMATION
  Report Type: Report from Study
  Country: DO (occurrence: DO)
  Receive Date: 20221227
  Receipt Date: 20221227
  Transmission Date: 20230113
  Serious: Yes (Other)
  Sender: FDA-Public Use
  Company Number: DO-002147023-NVSC2021DO006687

PATIENT
  Age: 31 Year
  Sex: Female

DRUGS (2)
  1. KISQALI [Suspect]
     Active Substance: RIBOCICLIB
     Indication: Breast cancer
     Dosage: 600 MG, QD (600 MG AND ALSO AS 200MG X 60. PRESENTATION IS 200 MG)
     Route: 048
     Dates: start: 20201101, end: 20210303
  2. KISQALI [Suspect]
     Active Substance: RIBOCICLIB
     Indication: Metastases to central nervous system
     Dosage: 600 MG, QD (200 MGX63)
     Route: 048
     Dates: start: 20201215

REACTIONS (12)
  - Haemoglobin decreased [Unknown]
  - Pneumonia [Unknown]
  - Pain [Recovered/Resolved]
  - Pain [Unknown]
  - Spinal pain [Unknown]
  - Vaginal odour [Unknown]
  - Skin discolouration [Unknown]
  - Skin odour abnormal [Unknown]
  - Pyrexia [Unknown]
  - Headache [Unknown]
  - Back pain [Recovered/Resolved]
  - Back pain [Unknown]

NARRATIVE: CASE EVENT DATE: 20210106
